FAERS Safety Report 4409901-1 (Version None)
Quarter: 2004Q3

REPORT INFORMATION
  Report Type: 
  Country: None (occurrence: None)
  Receive Date: 20040722
  Receipt Date: 20040710
  Transmission Date: 20050211
  Serious: Yes (Other)
  Sender: FDA-Public Use
  Company Number: 2004046808

PATIENT
  Age: 56 Year
  Sex: Male

DRUGS (1)
  1. ZOLOFT [Suspect]
     Indication: DEPRESSION
     Dosage: 50 MG (50 MG, 1 IN 1 D), ORAL
     Route: 048
     Dates: start: 20040301

REACTIONS (7)
  - BLOOD PRESSURE INCREASED [None]
  - ERECTILE DYSFUNCTION [None]
  - FEELING JITTERY [None]
  - NERVOUSNESS [None]
  - PAIN [None]
  - RENAL DISORDER [None]
  - SOMNOLENCE [None]
